FAERS Safety Report 6656881-4 (Version None)
Quarter: 2010Q1

REPORT INFORMATION
  Report Type: 
  Country: None (occurrence: None)
  Receive Date: 20100329
  Receipt Date: 20100329
  Transmission Date: 20100710
  Serious: Yes (Other)
  Sender: FDA-Public Use
  Company Number: None

PATIENT
  Age: 48 Year
  Sex: Female
  Weight: 72.5755 kg

DRUGS (2)
  1. BOTOX COSMETIC [Suspect]
     Indication: MIGRAINE
     Dosage: 62 UNITS IM
     Route: 030
  2. BOTOX COSMETIC [Suspect]
     Indication: SKIN COSMETIC PROCEDURE
     Dosage: 62 UNITS IM
     Route: 030

REACTIONS (9)
  - DISCOMFORT [None]
  - EYELID PTOSIS [None]
  - FACE OEDEMA [None]
  - FACIAL PAIN [None]
  - FACIAL PARESIS [None]
  - HEADACHE [None]
  - PAIN [None]
  - RASH ERYTHEMATOUS [None]
  - VISION BLURRED [None]
